FAERS Safety Report 5534141-2 (Version None)
Quarter: 2007Q4

REPORT INFORMATION
  Report Type: 
  Country: None (occurrence: None)
  Receive Date: 20071205
  Receipt Date: 20071129
  Transmission Date: 20080405
  Serious: Yes (Life-Threatening, Hospitalization)
  Sender: FDA-Public Use
  Company Number: JP-BRISTOL-MYERS SQUIBB COMPANY-13931423

PATIENT
  Age: 40 Year
  Sex: Female

DRUGS (3)
  1. TAXOL [Suspect]
     Indication: NON-SMALL CELL LUNG CANCER
     Dosage: 6TH CYCLE WAS STARTED ON 28-SEP-OCT.
     Route: 041
     Dates: start: 20070601, end: 20070928
  2. PARAPLATIN [Suspect]
     Indication: NON-SMALL CELL LUNG CANCER
     Dosage: 6TH CYCLE WAS STARTED ON 28-SEP-2007
     Route: 041
     Dates: start: 20070601, end: 20070928
  3. AVASTIN [Suspect]
     Indication: NON-SMALL CELL LUNG CANCER
     Dosage: 6TH CYCLE WAS STARTED ON 27-SEP-2007
     Route: 041
     Dates: start: 20070601, end: 20070928

REACTIONS (4)
  - ANOREXIA [None]
  - CARDIAC FAILURE [None]
  - CARDIOMYOPATHY [None]
  - FATIGUE [None]
